FAERS Safety Report 4424833-0 (Version None)
Quarter: 2004Q3

REPORT INFORMATION
  Report Type: 
  Country: None (occurrence: None)
  Receive Date: 20040719
  Receipt Date: 20030718
  Transmission Date: 20050211
  Serious: Yes (Hospitalization)
  Sender: FDA-Public Use
  Company Number: 176001

PATIENT
  Age: 42 Year
  Sex: Female
  Weight: 63.5036 kg

DRUGS (6)
  1. AVONEX [Suspect]
     Indication: MULTIPLE SCLEROSIS
     Dosage: 30 MCG QW IM
     Route: 030
     Dates: start: 20010101
  2. KLONOPIN [Concomitant]
  3. DETROL-SLOW RELEASE [Concomitant]
  4. ANTIDEPRESSANT (NOS) [Concomitant]
  5. VITAMINS WITH CALCIUM [Concomitant]
  6. STEROIDS (NOS) [Concomitant]

REACTIONS (1)
  - MULTIPLE SCLEROSIS [None]
